FAERS Safety Report 18421326 (Version 3)
Quarter: 2021Q1

REPORT INFORMATION
  Report Type: Spontaneous
  Country: US (occurrence: US)
  Receive Date: 20201023
  Receipt Date: 20210212
  Transmission Date: 20210419
  Serious: Yes (Death, Life-Threatening, Hospitalization)
  Sender: FDA-Public Use
  Company Number: US-CELGENEUS-USA-20201004949

PATIENT
  Age: 80 Year
  Sex: Male
  Weight: 105.8 kg

DRUGS (28)
  1. VENETOCLAX. [Concomitant]
     Active Substance: VENETOCLAX
     Indication: MYELODYSPLASTIC SYNDROME
     Dosage: 50 MILLIGRAM
     Route: 048
     Dates: start: 20201009, end: 20201009
  2. LASIX [Concomitant]
     Active Substance: FUROSEMIDE
     Indication: OEDEMA PERIPHERAL
     Dosage: 20 MILLIGRAM
     Route: 041
     Dates: start: 20201003, end: 20201005
  3. LASIX [Concomitant]
     Active Substance: FUROSEMIDE
     Dosage: 40 MILLIGRAM
     Route: 048
     Dates: start: 20200925, end: 20200925
  4. DEMADEX [Concomitant]
     Active Substance: TORSEMIDE
     Indication: CARDIAC FAILURE
     Dosage: 20 MILLIGRAM
     Route: 048
     Dates: start: 20191212
  5. AZACITIDINE. [Suspect]
     Active Substance: AZACITIDINE
     Indication: MYELODYSPLASTIC SYNDROME
     Dosage: 75 MILLIGRAM/SQ. METER
     Route: 041
     Dates: start: 20201009, end: 20201012
  6. VALTREX [Concomitant]
     Active Substance: VALACYCLOVIR HYDROCHLORIDE
     Indication: ANTIVIRAL PROPHYLAXIS
     Dosage: 500 MILLIGRAM
     Route: 048
     Dates: start: 20201002
  7. NOXAFIL [Concomitant]
     Active Substance: POSACONAZOLE
     Indication: ANTIFUNGAL PROPHYLAXIS
     Dosage: 300 MILLIGRAM
     Route: 048
     Dates: start: 20201009
  8. ALLOPURINOL. [Concomitant]
     Active Substance: ALLOPURINOL
     Indication: PROPHYLAXIS
     Dosage: 300 MILLIGRAM
     Route: 048
     Dates: start: 20200928
  9. SOLU?CORTEF [Concomitant]
     Active Substance: HYDROCORTISONE SODIUM SUCCINATE
     Dosage: 25 MILLIGRAM
     Route: 041
     Dates: start: 20201007, end: 20201007
  10. BUMEX [Concomitant]
     Active Substance: BUMETANIDE
     Indication: OEDEMA
     Dosage: 9 MILLIGRAM
     Route: 041
     Dates: start: 20201012, end: 20201012
  11. LOPRESSOR [Concomitant]
     Active Substance: METOPROLOL TARTRATE
     Indication: HYPERTENSION
     Dosage: 75 MILLIGRAM
     Route: 048
     Dates: start: 20201004, end: 20201009
  12. BUSPAR [Concomitant]
     Active Substance: BUSPIRONE HYDROCHLORIDE
     Indication: CARDIAC FAILURE
     Route: 041
     Dates: start: 20201007, end: 20201011
  13. SOLU?CORTEF [Concomitant]
     Active Substance: HYDROCORTISONE SODIUM SUCCINATE
     Dosage: 25 MILLIGRAM
     Route: 041
     Dates: start: 20201016, end: 20201016
  14. VITAMIN K [Concomitant]
     Active Substance: PHYTONADIONE
     Indication: BLOOD DISORDER
     Dosage: 10 MILLIGRAM
     Route: 041
     Dates: start: 20201014, end: 20201016
  15. SOLU?CORTEF [Concomitant]
     Active Substance: HYDROCORTISONE SODIUM SUCCINATE
     Dosage: 25 MILLIGRAM
     Route: 041
     Dates: start: 20201014, end: 20201014
  16. SOLU?CORTEF [Concomitant]
     Active Substance: HYDROCORTISONE SODIUM SUCCINATE
     Dosage: 25 MILLIGRAM
     Route: 041
     Dates: start: 20201015, end: 20201015
  17. OXYGEN. [Concomitant]
     Active Substance: OXYGEN
     Indication: DYSPNOEA
     Dosage: 6 LITERS
     Route: 045
     Dates: start: 2019
  18. VANTIN [Concomitant]
     Active Substance: CEFPODOXIME PROXETIL
     Indication: ANTIBIOTIC PROPHYLAXIS
     Dosage: 400 MILLIGRAM
     Route: 048
     Dates: start: 20201009, end: 20201011
  19. ALLOPURINOL. [Concomitant]
     Active Substance: ALLOPURINOL
     Indication: HYPERURICAEMIA
     Route: 048
     Dates: start: 20201003, end: 20201009
  20. LOPRESSOR [Concomitant]
     Active Substance: METOPROLOL TARTRATE
     Indication: PALPITATIONS
  21. PROTONIX [Concomitant]
     Active Substance: PANTOPRAZOLE SODIUM
     Indication: GASTROINTESTINAL DISORDER PROPHYLAXIS
     Dosage: 40 MILLIGRAM
     Route: 041
     Dates: start: 20201011, end: 20201017
  22. SOLU?CORTEF [Concomitant]
     Active Substance: HYDROCORTISONE SODIUM SUCCINATE
     Indication: PREMEDICATION
     Dosage: 25 MILLIGRAM
     Route: 041
     Dates: start: 20201006, end: 20201006
  23. SOLU?CORTEF [Concomitant]
     Active Substance: HYDROCORTISONE SODIUM SUCCINATE
     Dosage: 25 MILLIGRAM
     Route: 041
     Dates: start: 20201011, end: 20201011
  24. LASIX [Concomitant]
     Active Substance: FUROSEMIDE
     Dosage: 40 MILLIGRAM
     Route: 041
     Dates: start: 20201006, end: 20201006
  25. LASIX [Concomitant]
     Active Substance: FUROSEMIDE
     Dosage: 40 MILLIGRAM
     Route: 048
     Dates: start: 20201005, end: 20201007
  26. BETAPACE [Concomitant]
     Active Substance: SOTALOL HYDROCHLORIDE
     Indication: ATRIAL TACHYCARDIA
     Dosage: 240 MILLIGRAM
     Route: 048
     Dates: start: 20191223
  27. SOLU?CORTEF [Concomitant]
     Active Substance: HYDROCORTISONE SODIUM SUCCINATE
     Dosage: 25 MILLIGRAM
     Route: 041
     Dates: start: 20201013, end: 20201013
  28. HUMULIN R [Concomitant]
     Active Substance: INSULIN HUMAN
     Indication: DIABETES MELLITUS
     Dosage: 7?20 UNITS
     Route: 058
     Dates: start: 20201016, end: 20201016

REACTIONS (2)
  - Respiratory failure [Fatal]
  - Respiratory failure [Recovered/Resolved]

NARRATIVE: CASE EVENT DATE: 20201009
